FAERS Safety Report 21541753 (Version 1)
Quarter: 2022Q4

REPORT INFORMATION
  Report Type: Spontaneous
  Country: US (occurrence: None)
  Receive Date: 20221101
  Receipt Date: 20221101
  Transmission Date: 20230113
  Serious: Yes (Life-Threatening, Hospitalization)
  Sender: FDA-Public Use
  Company Number: None

PATIENT

DRUGS (1)
  1. APIXABAN [Suspect]
     Active Substance: APIXABAN

REACTIONS (5)
  - Road traffic accident [None]
  - Loss of consciousness [None]
  - Extradural haematoma [None]
  - Carotid artery dissection [None]
  - Therapy interrupted [None]

NARRATIVE: CASE EVENT DATE: 20210521
